FAERS Safety Report 8220923-5 (Version None)
Quarter: 2012Q1

REPORT INFORMATION
  Report Type: 
  Country: None (occurrence: None)
  Receive Date: 20120320
  Receipt Date: 20120312
  Transmission Date: 20120608
  Serious: Yes (Life-Threatening)
  Sender: FDA-Public Use
  Company Number: CN-BRISTOL-MYERS SQUIBB COMPANY-16408759

PATIENT
  Age: 59 Year
  Sex: Female
  Weight: 65 kg

DRUGS (3)
  1. CETUXIMAB [Suspect]
     Indication: NON-SMALL CELL LUNG CANCER
     Dosage: STAT,INTER ON 30JUL10,25JUN10, 20JUL10IV.625MG STAT 14-14MAY10;400MGQW21MAY-25JUN10. LAST 30JUL10
     Route: 041
     Dates: start: 20100514
  2. VINORELBINE [Suspect]
     Indication: NON-SMALL CELL LUNG CANCER
     Dosage: FREQUENCY:STAT,INTER ON 30JUL10,THERAPY DURATION:70DAYS 40MG D1,D8,21MAY2010
     Route: 042
     Dates: start: 20100321
  3. CISPLATIN [Suspect]
     Indication: NON-SMALL CELL LUNG CANCER
     Dosage: STAT,INTER ON 30JUL10,THERAPY DURATION:70DAYS. 120MG 21MAY-12JUN10 44MG 5-30JUL10 D1 D3 3WKS
     Route: 041
     Dates: start: 20100521

REACTIONS (1)
  - NEUTROPENIA [None]
